FAERS Safety Report 16560959 (Version 2)
Quarter: 2019Q3

REPORT INFORMATION
  Report Type: Report from Study
  Country: US (occurrence: US)
  Receive Date: 20190711
  Receipt Date: 20190712
  Transmission Date: 20191004
  Serious: Yes (Other)
  Sender: FDA-Public Use
  Company Number: US-ROCHE-1986389

PATIENT

DRUGS (5)
  1. ALTEPLASE. [Suspect]
     Active Substance: ALTEPLASE
     Indication: ACUTE MYOCARDIAL INFARCTION
     Dosage: 6 HOUR INFUSION
     Route: 042
  2. HEPARIN [Suspect]
     Active Substance: HEPARIN SODIUM
     Dosage: 1,000 UNITS/HOUR WAS STARTED 1 HOUR AFTER AN INITIAL BOLUS
     Route: 042
  3. HEPARIN [Suspect]
     Active Substance: HEPARIN SODIUM
     Route: 058
  4. HEPARIN [Suspect]
     Active Substance: HEPARIN SODIUM
     Indication: ACUTE MYOCARDIAL INFARCTION
     Route: 040
  5. ASPIRIN [ACETYLSALICYLIC ACID] [Suspect]
     Active Substance: ASPIRIN
     Indication: ACUTE MYOCARDIAL INFARCTION
     Route: 065

REACTIONS (12)
  - Subdural haemorrhage [Unknown]
  - Haemorrhage [Unknown]
  - Catheter site haemorrhage [Unknown]
  - Cerebral haemorrhage [Unknown]
  - Haemoglobin decreased [Unknown]
  - Subdural haematoma [Unknown]
  - Gastrointestinal haemorrhage [Unknown]
  - Urogenital haemorrhage [Unknown]
  - Haemorrhage intracranial [Unknown]
  - Cerebral artery embolism [Unknown]
  - Puncture site haemorrhage [Unknown]
  - Cerebral infarction [Unknown]
